FAERS Safety Report 5315864-7 (Version None)
Quarter: 2007Q2

REPORT INFORMATION
  Report Type: 
  Country: None (occurrence: None)
  Receive Date: 20070503
  Receipt Date: 20070425
  Transmission Date: 20071010
  Serious: Yes (Other)
  Sender: FDA-Public Use
  Company Number: GB-JNJFOC-20070401032

PATIENT
  Sex: Male
  Weight: 66 kg

DRUGS (15)
  1. RISPERDAL [Suspect]
     Route: 065
  2. RISPERDAL [Suspect]
     Route: 065
  3. RISPERDAL [Suspect]
     Indication: SCHIZOPHRENIA
     Route: 065
  4. HALOPERIDOL [Suspect]
     Indication: SCHIZOPHRENIA
  5. FERROUS SULFATE TAB [Concomitant]
     Indication: ANAEMIA
  6. METFORMIN HCL [Concomitant]
     Indication: DIABETES MELLITUS
  7. CANDESARTAN [Concomitant]
     Indication: HYPERTENSION
  8. SIMVASTATIN [Concomitant]
     Indication: DIABETES MELLITUS
  9. ATENOLOL [Concomitant]
     Indication: HYPERTENSION
  10. MOXONIDINE [Concomitant]
     Indication: HYPERTENSION
  11. QUININE SULFATE [Concomitant]
     Indication: MUSCLE SPASMS
  12. LEVOTHYROXINE SODIUM [Concomitant]
     Indication: HYPOTHYROIDISM
  13. OMEPRAZOLE [Concomitant]
     Indication: DYSPEPSIA
  14. BENDROFLUMETHIAZIDE [Concomitant]
     Indication: HYPERTENSION
  15. NOVOMIX [Concomitant]

REACTIONS (2)
  - EYELID DISORDER [None]
  - FATIGUE [None]
